FAERS Safety Report 24031158 (Version 2)
Quarter: 2024Q3

REPORT INFORMATION
  Report Type: Spontaneous
  Country: DE (occurrence: DE)
  Receive Date: 20240628
  Receipt Date: 20240711
  Transmission Date: 20241017
  Serious: Yes (Other)
  Sender: ABBVIE
  Company Number: DE-ABBOTT-2024A-1382822

PATIENT
  Age: 37 Year
  Sex: Male
  Weight: 173 kg

DRUGS (1)
  1. PANCRELIPASE [Suspect]
     Active Substance: PANCRELIPASE
     Indication: Pancreatic failure
     Dosage: UNK, 25000
     Route: 048
     Dates: end: 2024

REACTIONS (3)
  - Abdominal discomfort [Recovered/Resolved]
  - Product size issue [Unknown]
  - Packaging design issue [Unknown]
